FAERS Safety Report 15470131 (Version 1)
Quarter: 2018Q4

REPORT INFORMATION
  Report Type: Spontaneous
  Country: NL (occurrence: NL)
  Receive Date: 20181005
  Receipt Date: 20181005
  Transmission Date: 20190205
  Serious: Yes (Death)
  Sender: FDA-Public Use
  Company Number: NL-BAYER-2018-184346

PATIENT
  Age: 57 Year
  Sex: Male

DRUGS (4)
  1. AMIKACIN. [Concomitant]
     Active Substance: AMIKACIN
     Indication: MYCOBACTERIAL INFECTION
     Dosage: UNK
  2. MOXIFLOXACIN ORAL [Suspect]
     Active Substance: MOXIFLOXACIN
     Indication: MYCOBACTERIAL INFECTION
     Dosage: UNK
  3. CLOFAZIMINE [Concomitant]
     Active Substance: CLOFAZIMINE
     Indication: MYCOBACTERIAL INFECTION
     Dosage: UNK
  4. INTERFERON [Concomitant]
     Active Substance: INTERFERON
     Indication: MYCOBACTERIAL INFECTION
     Dosage: UNK

REACTIONS (5)
  - Off label use [None]
  - Multiple organ dysfunction syndrome [Fatal]
  - Pneumonia [Fatal]
  - Intensive care unit acquired weakness [Fatal]
  - Product use in unapproved indication [None]
